FAERS Safety Report 5768180-3 (Version None)
Quarter: 2008Q2

REPORT INFORMATION
  Report Type: 
  Country: None (occurrence: None)
  Receive Date: 20080612
  Receipt Date: 20080605
  Transmission Date: 20081010
  Serious: Yes (Hospitalization)
  Sender: FDA-Public Use
  Company Number: US-AMGEN-US285087

PATIENT
  Sex: Female

DRUGS (8)
  1. PANITUMUMAB [Suspect]
     Indication: COLORECTAL CANCER
     Route: 042
     Dates: start: 20071205
  2. ATENOLOL [Concomitant]
  3. PROCARDIA XL [Concomitant]
  4. KLOR-CON [Concomitant]
  5. PRILOSEC [Concomitant]
  6. FLUOROURACIL [Concomitant]
  7. OXALIPLATIN [Concomitant]
  8. LEUCOVORIN CALCIUM [Concomitant]

REACTIONS (2)
  - DEEP VEIN THROMBOSIS [None]
  - DEHYDRATION [None]
